FAERS Safety Report 13538435 (Version 1)
Quarter: 2017Q2

REPORT INFORMATION
  Report Type: Spontaneous
  Country: CA (occurrence: CA)
  Receive Date: 20170512
  Receipt Date: 20170512
  Transmission Date: 20170830
  Serious: Yes (Hospitalization)
  Sender: FDA-Public Use
  Company Number: CA-JNJFOC-20170506470

PATIENT
  Age: 1 Day
  Weight: 1 kg

DRUGS (5)
  1. IMODIUM [Suspect]
     Active Substance: LOPERAMIDE HYDROCHLORIDE
     Indication: PRODUCT USED FOR UNKNOWN INDICATION
     Route: 064
  2. IMODIUM [Suspect]
     Active Substance: LOPERAMIDE HYDROCHLORIDE
     Route: 064
  3. DIMENHYDRINATE. [Concomitant]
     Active Substance: DIMENHYDRINATE
     Route: 065
  4. PARACETAMOL [Concomitant]
     Active Substance: ACETAMINOPHEN
     Route: 065
  5. FOLIC ACID. [Concomitant]
     Active Substance: FOLIC ACID
     Route: 065

REACTIONS (7)
  - Cardiac murmur [Unknown]
  - Decreased appetite [Unknown]
  - Seborrhoeic dermatitis [Unknown]
  - Foetal distress syndrome [Unknown]
  - Bradycardia [Unknown]
  - Somnolence neonatal [Unknown]
  - Foetal exposure during pregnancy [Unknown]
